FAERS Safety Report 16664913 (Version 1)
Quarter: 2019Q3

REPORT INFORMATION
  Report Type: Spontaneous
  Country: IT (occurrence: IT)
  Receive Date: 20190803
  Receipt Date: 20190803
  Transmission Date: 20191004
  Serious: Yes (Other)
  Sender: FDA-Public Use
  Company Number: IT-ACCORD-150096

PATIENT
  Age: 17 Year
  Sex: Female

DRUGS (8)
  1. ARIPIPRAZOLE. [Suspect]
     Active Substance: ARIPIPRAZOLE
     Indication: MAJOR DEPRESSION
     Dosage: DOSE INCREASED UPTO 7.5MG
     Route: 065
  2. LORAZEPAM. [Concomitant]
     Active Substance: LORAZEPAM
     Indication: HIPPOCAMPAL SCLEROSIS
     Dosage: 4 MILLIGRAM DAILY
     Route: 065
  3. TRIHEXYPHENIDYL [Suspect]
     Active Substance: TRIHEXYPHENIDYL
     Indication: DYSTONIA
     Dosage: 6 MILLIGRAM DAILY
     Route: 065
  4. ARIPIPRAZOLE. [Suspect]
     Active Substance: ARIPIPRAZOLE
     Indication: MAJOR DEPRESSION
     Dosage: 7.5 MILLIGRAM DAILY, DOSE INCREASED UPTO 7.5MG
     Route: 065
  5. CARBAMAZEPINE. [Concomitant]
     Active Substance: CARBAMAZEPINE
     Indication: CLONIC CONVULSION
     Dosage: 200 MILLIGRAM DAILY
     Route: 065
  6. TRIHEXYPHENIDYL [Suspect]
     Active Substance: TRIHEXYPHENIDYL
     Indication: DYSTONIA
     Dosage: 10 MILLIGRAM DAILY
     Route: 065
  7. FLUNARIZINE [Concomitant]
     Active Substance: FLUNARIZINE
     Indication: DYSTONIA
     Dosage: 5 MILLIGRAM DAILY
     Route: 065
  8. LORAZEPAM. [Concomitant]
     Active Substance: LORAZEPAM
     Indication: HIPPOCAMPAL SCLEROSIS
     Route: 065

REACTIONS (4)
  - Psychiatric symptom [Recovered/Resolved]
  - Dystonia [Recovered/Resolved]
  - Off label use [Unknown]
  - Condition aggravated [Recovered/Resolved]
